FAERS Safety Report 10065581 (Version 1)
Quarter: 2014Q2

REPORT INFORMATION
  Report Type: Spontaneous
  Country: US (occurrence: None)
  Receive Date: 20140401
  Receipt Date: 20140401
  Transmission Date: 20141212
  Serious: Yes (Hospitalization)
  Sender: FDA-Public Use
  Company Number: PHEH2013US017195

PATIENT
  Age: 91 Year
  Sex: Female

DRUGS (9)
  1. EXELON PATCH [Suspect]
     Indication: DEMENTIA
     Dosage: 4.6 MG (5 CM2)
     Route: 062
  2. EXELON [Suspect]
  3. FENTANYL [Concomitant]
  4. LISINOPRIL [Concomitant]
  5. TRAMADOL [Concomitant]
  6. LYRICA (PREGABALIN) [Concomitant]
  7. OMEPRAZOLE [Concomitant]
  8. SENNA (SENNA ALEXANDRINA) [Concomitant]
  9. SEROQUEL (QUETIAPINE FUMARATE) [Concomitant]

REACTIONS (4)
  - Blood pressure increased [None]
  - Nausea [None]
  - Vomiting [None]
  - Incorrect dose administered [None]
